FAERS Safety Report 10541171 (Version 1)
Quarter: 2014Q4

REPORT INFORMATION
  Report Type: Spontaneous
  Country: US (occurrence: None)
  Receive Date: 20141010
  Receipt Date: 20141010
  Transmission Date: 20150529
  Serious: Yes (Other)
  Sender: FDA-Public Use
  Company Number: 163-POMAL-14052871

PATIENT
  Age: 76 Year
  Sex: Male

DRUGS (2)
  1. POMALYST [Suspect]
     Active Substance: POMALIDOMIDE
     Indication: PLASMA CELL MYELOMA
     Dosage: 21 IN 28 D
     Route: 048
     Dates: start: 20140506
  2. CARFILZOMIB (CARFILZOMIB) [Concomitant]

REACTIONS (8)
  - Disturbance in attention [None]
  - Hypoaesthesia [None]
  - Dysphonia [None]
  - Asthenia [None]
  - Contusion [None]
  - Blood glucose increased [None]
  - Fatigue [None]
  - Insomnia [None]

NARRATIVE: CASE EVENT DATE: 2014
